FAERS Safety Report 9064512 (Version 1)
Quarter: 2013Q1

REPORT INFORMATION
  Report Type: Report from Study
  Country: US (occurrence: US)
  Receive Date: 20130131
  Receipt Date: 20130131
  Transmission Date: 20140127
  Serious: No
  Sender: FDA-Public Use
  Company Number: US-ABBOTT-12P-163-1008845-00

PATIENT
  Age: 63 Year
  Sex: Male

DRUGS (10)
  1. HUMIRA [Suspect]
     Indication: PSORIASIS
     Route: 058
     Dates: start: 20121024
  2. TRICOR [Concomitant]
     Indication: BLOOD CHOLESTEROL INCREASED
  3. SIMVASTATIN [Concomitant]
     Indication: BLOOD CHOLESTEROL
  4. NIASPAN [Concomitant]
     Indication: BLOOD CHOLESTEROL
  5. ALLOPURINOL [Concomitant]
     Indication: GOUT
  6. COZAAR [Concomitant]
     Indication: BLOOD PRESSURE
  7. ATENOLOL [Concomitant]
     Indication: BLOOD PRESSURE
  8. METFORMIN [Concomitant]
     Indication: HYPERGLYCAEMIA
  9. MULTIVITAMIN [Concomitant]
     Indication: PRODUCT USED FOR UNKNOWN INDICATION
  10. ASA [Concomitant]
     Indication: PROPHYLAXIS

REACTIONS (2)
  - Drug dose omission [Unknown]
  - Incorrect dose administered [Unknown]
